FAERS Safety Report 13438481 (Version 1)
Quarter: 2017Q2

REPORT INFORMATION
  Report Type: Spontaneous
  Country: US (occurrence: US)
  Receive Date: 20170412
  Receipt Date: 20170412
  Transmission Date: 20170830
  Serious: No
  Sender: FDA-Public Use
  Company Number: US-SA-2017SA037555

PATIENT
  Sex: Female

DRUGS (3)
  1. ALLEGRA [Suspect]
     Active Substance: FEXOFENADINE HYDROCHLORIDE
     Indication: RASH
     Route: 048
  2. CHILDREN^S ALLERGY, ORALLY DISINTEGRATING TABLETS [Concomitant]
     Active Substance: FEXOFENADINE HYDROCHLORIDE
     Route: 065
  3. ALLEGRA [Suspect]
     Active Substance: FEXOFENADINE HYDROCHLORIDE
     Indication: PAIN
     Route: 048

REACTIONS (5)
  - Back pain [Unknown]
  - Feeling abnormal [Unknown]
  - Chest pain [Unknown]
  - Headache [Unknown]
  - Myalgia [Unknown]
